FAERS Safety Report 7214575-0 (Version None)
Quarter: 2011Q1

REPORT INFORMATION
  Report Type: 
  Country: None (occurrence: None)
  Receive Date: 20110107
  Receipt Date: 20101231
  Transmission Date: 20110831
  Serious: Yes (Death)
  Sender: FDA-Public Use
  Company Number: US-PFIZER INC-2011002672

PATIENT
  Age: 49 Year
  Sex: Female

DRUGS (5)
  1. GABAPENTIN [Suspect]
  2. DULOXETINE [Suspect]
  3. ALPRAZOLAM [Suspect]
  4. CYCLOBENZAPRINE [Suspect]
  5. VERAPAMIL HCL [Suspect]

REACTIONS (1)
  - COMPLETED SUICIDE [None]
